FAERS Safety Report 5262463-1 (Version None)
Quarter: 2007Q1

REPORT INFORMATION
  Report Type: 
  Country: None (occurrence: None)
  Receive Date: 20070312
  Receipt Date: 20070306
  Transmission Date: 20070707
  Serious: Yes (Hospitalization)
  Sender: FDA-Public Use
  Company Number: US-JNJFOC-20070301853

PATIENT
  Sex: Female
  Weight: 46.27 kg

DRUGS (3)
  1. DURAGESIC-100 [Suspect]
     Indication: PAIN
     Route: 062
  2. LORAZEPAM [Suspect]
     Indication: DRUG USE FOR UNKNOWN INDICATION
     Route: 048
  3. UNKNOWN MEDICATION [Concomitant]
     Indication: ABDOMINAL DISTENSION
     Route: 048

REACTIONS (4)
  - ABDOMINAL DISCOMFORT [None]
  - AGITATION [None]
  - FEELING ABNORMAL [None]
  - HYPOTENSION [None]
